FAERS Safety Report 11868381 (Version 1)
Quarter: 2015Q4

REPORT INFORMATION
  Report Type: Spontaneous
  Country: US (occurrence: US)
  Receive Date: 20151224
  Receipt Date: 20151224
  Transmission Date: 20160305
  Serious: No
  Sender: FDA-Public Use
  Company Number: US-DRREDDYS-USA/USA/14/0045130

PATIENT
  Age: 54 Year
  Sex: Female
  Weight: 63.5 kg

DRUGS (2)
  1. HABITROL [Suspect]
     Active Substance: NICOTINE
     Indication: SMOKING CESSATION THERAPY
     Route: 062
     Dates: start: 20141112
  2. HABITROL [Suspect]
     Active Substance: NICOTINE
     Route: 062

REACTIONS (6)
  - Irritability [Recovered/Resolved]
  - Insomnia [Recovered/Resolved]
  - Increased appetite [Recovered/Resolved]
  - Drug dose omission [Unknown]
  - Nicotine dependence [Recovered/Resolved]
  - Product quality issue [Unknown]
